FAERS Safety Report 6818677-X (Version None)
Quarter: 2010Q3

REPORT INFORMATION
  Report Type: 
  Country: None (occurrence: None)
  Receive Date: 20100706
  Receipt Date: 20100628
  Transmission Date: 20110219
  Serious: Yes (Other)
  Sender: FDA-Public Use
  Company Number: US-AMGEN-KDL421212

PATIENT
  Sex: Female

DRUGS (1)
  1. ENBREL [Suspect]
     Indication: RHEUMATOID ARTHRITIS
     Route: 058
     Dates: start: 19970101

REACTIONS (9)
  - AMNESIA [None]
  - ARTHRALGIA [None]
  - CHOLECYSTECTOMY [None]
  - INCORRECT DOSE ADMINISTERED [None]
  - NEPHROLITHIASIS [None]
  - ONYCHOMYCOSIS [None]
  - STAPHYLOCOCCAL INFECTION [None]
  - VOMITING [None]
  - WEIGHT DECREASED [None]
